FAERS Safety Report 14203773 (Version 1)
Quarter: 2017Q4

REPORT INFORMATION
  Report Type: Spontaneous
  Country: US (occurrence: US)
  Receive Date: 20171120
  Receipt Date: 20171120
  Transmission Date: 20180321
  Serious: No
  Sender: FDA-Public Use
  Company Number: US-PFIZER INC-2017497059

PATIENT
  Age: 7 Year
  Sex: Male

DRUGS (1)
  1. EUCRISA [Suspect]
     Active Substance: CRISABOROLE
     Dosage: 2 %, AS NEEDED (APPLY TWICE A DAY)
     Dates: start: 20171017, end: 20171115

REACTIONS (3)
  - Ocular hyperaemia [Unknown]
  - Eyelid irritation [Unknown]
  - Eyelid oedema [Unknown]
